FAERS Safety Report 7927800-5 (Version None)
Quarter: 2011Q4

REPORT INFORMATION
  Report Type: 
  Country: None (occurrence: None)
  Receive Date: 20111118
  Receipt Date: 20111111
  Transmission Date: 20120403
  Serious: Yes (Other)
  Sender: FDA-Public Use
  Company Number: US-JNJFOC-20111105508

PATIENT
  Sex: Female
  Weight: 81.19 kg

DRUGS (3)
  1. ATENOLOL [Concomitant]
     Indication: BLOOD PRESSURE
  2. REMICADE [Suspect]
     Indication: RHEUMATOID ARTHRITIS
     Route: 042
     Dates: start: 20070101, end: 20110101
  3. METHOTREXATE [Concomitant]
     Indication: ARTHRITIS
     Dates: start: 20070101

REACTIONS (3)
  - CORNEAL OEDEMA [None]
  - MYCOBACTERIUM TUBERCULOSIS COMPLEX TEST POSITIVE [None]
  - CATARACT [None]
